FAERS Safety Report 9814500 (Version 1)
Quarter: 2014Q1

REPORT INFORMATION
  Report Type: Spontaneous
  Country: US (occurrence: US)
  Receive Date: 20140113
  Receipt Date: 20140113
  Transmission Date: 20141002
  Serious: No
  Sender: FDA-Public Use
  Company Number: US-BIOGENIDEC-2013BI079394

PATIENT
  Sex: Female
  Weight: 72 kg

DRUGS (19)
  1. TECFIDERA [Suspect]
     Indication: MULTIPLE SCLEROSIS
     Route: 048
  2. TECFIDERA [Suspect]
     Indication: MULTIPLE SCLEROSIS
  3. TECFIDERA [Suspect]
     Indication: MULTIPLE SCLEROSIS
     Route: 048
     Dates: start: 2013
  4. AMPYRA [Concomitant]
     Indication: MULTIPLE SCLEROSIS
     Route: 048
     Dates: start: 2012
  5. BACLOFEN [Concomitant]
     Indication: MUSCLE SPASMS
     Route: 048
  6. FLOMAX [Concomitant]
     Indication: POLLAKIURIA
     Route: 048
  7. ASA LOW DOSE [Concomitant]
     Indication: PROPHYLAXIS
     Route: 048
  8. POTASSIUM [Concomitant]
     Indication: PROPHYLAXIS
     Route: 048
  9. VITAMIN B [Concomitant]
     Indication: PRODUCT USED FOR UNKNOWN INDICATION
  10. NORVASC [Concomitant]
     Indication: HYPERTENSION
     Route: 048
  11. COZAAR [Concomitant]
     Indication: HYPERTENSION
     Route: 048
  12. HYDROCHLOROTHIAZIDE [Concomitant]
     Indication: HYPERTENSION
     Route: 048
  13. MORPHINE SULFATE [Concomitant]
     Indication: PAIN
     Route: 048
  14. MIRALAX [Concomitant]
     Indication: CONSTIPATION
     Route: 048
  15. COLACE [Concomitant]
     Indication: CONSTIPATION
     Route: 048
  16. DEXILANT [Concomitant]
     Route: 048
  17. VITAMIN D [Concomitant]
     Indication: NUTRITIONAL SUPPLEMENTATION
     Route: 048
  18. ADDERALL [Concomitant]
     Indication: COGNITIVE DISORDER
     Route: 048
  19. VITAMIN B COMPLEX [Concomitant]
     Indication: NUTRITIONAL SUPPLEMENTATION
     Route: 048

REACTIONS (2)
  - Prescribed underdose [Unknown]
  - Feeling hot [Recovered/Resolved]
